FAERS Safety Report 7912713-5 (Version None)
Quarter: 2011Q4

REPORT INFORMATION
  Report Type: 
  Country: None (occurrence: None)
  Receive Date: 20111114
  Receipt Date: 20111108
  Transmission Date: 20120403
  Serious: Yes (Other)
  Sender: FDA-Public Use
  Company Number: PT-PFIZER INC-2011269115

PATIENT
  Age: 70 Year
  Sex: Male

DRUGS (11)
  1. SUTENT [Suspect]
     Dosage: 37.5 MG, 1X/DAY
     Route: 048
     Dates: start: 20110404, end: 20111102
  2. MEDROL [Suspect]
     Indication: METASTASES TO LUNG
     Dosage: 4 MG, 1X/DAY
     Route: 048
     Dates: end: 20110517
  3. AMLODIPINE [Concomitant]
     Dosage: 2.5 MG, DAILY
     Dates: start: 20110404
  4. AMLODIPINE [Concomitant]
     Dosage: 2.5 MG, 2X/DAY
  5. TRENTAL ^AVENTIS PHARMA^ [Concomitant]
     Dosage: UNK
     Dates: start: 20110404
  6. MEDROL [Suspect]
     Dosage: 2 MG, 1X/DAY
     Route: 048
     Dates: start: 20110517, end: 20110801
  7. SUTENT [Suspect]
     Indication: RENAL CELL CARCINOMA
     Dosage: 50 MG, 1X/DAY
     Route: 048
     Dates: start: 20101129, end: 20110404
  8. CODIPRONT [Concomitant]
     Dosage: UNK
  9. MEDROL [Suspect]
     Dosage: 4 MG, 2X/DAY
     Route: 048
     Dates: start: 20110801
  10. VENTILAN [Concomitant]
     Dosage: UNK
  11. ATARAX [Concomitant]
     Dosage: UNK

REACTIONS (5)
  - RENAL FAILURE [None]
  - ASTHENIA [None]
  - PALMAR-PLANTAR ERYTHRODYSAESTHESIA SYNDROME [None]
  - BONE LOSS [None]
  - OSTEOMYELITIS [None]
